FAERS Safety Report 10016815 (Version 3)
Quarter: 2014Q2

REPORT INFORMATION
  Report Type: Report from Study
  Country: IE (occurrence: IE)
  Receive Date: 20140318
  Receipt Date: 20140411
  Transmission Date: 20141212
  Serious: Yes (Hospitalization)
  Sender: FDA-Public Use
  Company Number: PHHY2013IE127748

PATIENT
  Age: 74 Year
  Sex: Male

DRUGS (5)
  1. AFINITOR [Suspect]
     Indication: PANCREATIC NEUROENDOCRINE TUMOUR
     Dosage: 10 MG, DAILY
     Dates: start: 20130902, end: 20140116
  2. SERC [Concomitant]
     Indication: VERTIGO
  3. LANREOTIDE [Concomitant]
  4. ZOLEDRONIC ACID [Concomitant]
  5. PREGABALIN [Concomitant]
     Dosage: 100 MG, UNK
     Dates: start: 20131223

REACTIONS (7)
  - Intervertebral disc degeneration [Unknown]
  - General physical health deterioration [Unknown]
  - Pain in extremity [Not Recovered/Not Resolved]
  - Back pain [Not Recovered/Not Resolved]
  - Metastases to spine [Unknown]
  - Metastases to stomach [Unknown]
  - Haemoglobin decreased [Not Recovered/Not Resolved]
